FAERS Safety Report 18636817 (Version 1)
Quarter: 2020Q4

REPORT INFORMATION
  Report Type: Spontaneous
  Country: CN (occurrence: CN)
  Receive Date: 20201218
  Receipt Date: 20201218
  Transmission Date: 20210114
  Serious: Yes (Congenital Anomaly)
  Sender: FDA-Public Use
  Company Number: CN-FOUNDATIONCONSUMERHC-2020-CN-000383

PATIENT
  Age: 0 Year
  Sex: 0

DRUGS (1)
  1. LEVONORGESTREL (UNSPECIFIED) [Suspect]
     Active Substance: LEVONORGESTREL
     Indication: MATERNAL EXPOSURE BEFORE PREGNANCY
     Route: 050
     Dates: start: 20190109, end: 20190109

REACTIONS (2)
  - Maternal exposure before pregnancy [Recovered/Resolved]
  - Atrial septal defect [Not Recovered/Not Resolved]

NARRATIVE: CASE EVENT DATE: 20190109
